FAERS Safety Report 7931170-6 (Version None)
Quarter: 2011Q4

REPORT INFORMATION
  Report Type: 
  Country: None (occurrence: None)
  Receive Date: 20111121
  Receipt Date: 20111111
  Transmission Date: 20120403
  Serious: Yes (Other)
  Sender: FDA-Public Use
  Company Number: US-MERCK-1111USA01667

PATIENT
  Age: 52 Year
  Sex: Female

DRUGS (5)
  1. JANUMET [Suspect]
     Indication: TYPE 2 DIABETES MELLITUS
     Route: 048
     Dates: end: 20110101
  2. JANUMET [Suspect]
     Route: 048
     Dates: start: 20080101
  3. LISINOPRIL [Concomitant]
     Route: 048
  4. ACTOS [Concomitant]
     Route: 065
  5. CRESTOR [Concomitant]
     Route: 065

REACTIONS (7)
  - DIZZINESS [None]
  - WEIGHT INCREASED [None]
  - INAPPROPRIATE SCHEDULE OF DRUG ADMINISTRATION [None]
  - CHEST PAIN [None]
  - BLINDNESS [None]
  - CONSTIPATION [None]
  - FEELING ABNORMAL [None]
